FAERS Safety Report 15075116 (Version 1)
Quarter: 2018Q2

REPORT INFORMATION
  Report Type: Report from Study
  Country: US (occurrence: US)
  Receive Date: 20180627
  Receipt Date: 20180627
  Transmission Date: 20180711
  Serious: Yes (Other)
  Sender: FDA-Public Use
  Company Number: US-SAOL THERAPEUTICS-2017SAO01737

PATIENT
  Age: 49 Year
  Sex: Female
  Weight: 83.9 kg

DRUGS (1)
  1. LIORESAL [Suspect]
     Active Substance: BACLOFEN
     Dosage: 449.9 ?G, \DAY
     Route: 037

REACTIONS (6)
  - Device dislocation [Recovered/Resolved]
  - Pain [Recovered/Resolved]
  - Therapeutic product ineffective for unapproved indication [Recovered/Resolved]
  - Device kink [Recovered/Resolved]
  - Abdominal discomfort [Recovered/Resolved]
  - Drug withdrawal syndrome [Recovered/Resolved]

NARRATIVE: CASE EVENT DATE: 20170518
